FAERS Safety Report 4889246-6 (Version None)
Quarter: 2006Q1

REPORT INFORMATION
  Report Type: 
  Country: None (occurrence: None)
  Receive Date: 20060120
  Receipt Date: 20060120
  Transmission Date: 20060701
  Serious: Yes (Other)
  Sender: FDA-Public Use
  Company Number: None

PATIENT
  Age: 25 Year
  Sex: Female
  Weight: 65.7716 kg

DRUGS (2)
  1. METOCLOPRAMIDE [Suspect]
     Indication: NAUSEA
     Dosage: 10MG  Q6H  PO
     Route: 048
     Dates: start: 20051230, end: 20060104
  2. METOCLOPRAMIDE [Suspect]
     Indication: VOMITING
     Dosage: 10MG  Q6H  PO
     Route: 048
     Dates: start: 20051230, end: 20060104

REACTIONS (4)
  - ANXIETY [None]
  - DEPRESSION [None]
  - INSOMNIA [None]
  - TREMOR [None]
